FAERS Safety Report 6299960-6 (Version None)
Quarter: 2009Q3

REPORT INFORMATION
  Report Type: 
  Country: None (occurrence: None)
  Receive Date: 20090806
  Receipt Date: 20090728
  Transmission Date: 20100115
  Serious: Yes (Hospitalization)
  Sender: FDA-Public Use
  Company Number: ES-WYE-H10411209

PATIENT
  Age: 69 Year
  Sex: Male

DRUGS (2)
  1. PANTECTA [Suspect]
     Indication: DYSPEPSIA
     Route: 048
     Dates: start: 20080508, end: 20080807
  2. ARCOXIA [Suspect]
     Indication: OSTEOARTHRITIS
     Dosage: (60 MILLIGRAM) DOSAGE AND FREQUENCY UNSPECIFIED
     Route: 048
     Dates: start: 20080508, end: 20080807

REACTIONS (1)
  - HAEMOLYTIC ANAEMIA [None]
